FAERS Safety Report 25017997 (Version 1)
Quarter: 2025Q1

REPORT INFORMATION
  Report Type: Spontaneous
  Country: US (occurrence: None)
  Receive Date: 20250226
  Receipt Date: 20250226
  Transmission Date: 20250408
  Serious: Yes (Life-Threatening)
  Sender: FDA-CTU
  Company Number: None

PATIENT
  Sex: Female

DRUGS (1)
  1. PHYTONADIONE [Suspect]
     Active Substance: PHYTONADIONE
     Route: 042
     Dates: start: 20250204, end: 20250204

REACTIONS (7)
  - Tachycardia [None]
  - Hypertension [None]
  - Seizure like phenomena [None]
  - Pulse absent [None]
  - Cardiac arrest [None]
  - Hypotension [None]
  - Anaphylactic reaction [None]

NARRATIVE: CASE EVENT DATE: 20250204
